FAERS Safety Report 16205272 (Version 14)
Quarter: 2020Q4

REPORT INFORMATION
  Report Type: Spontaneous
  Country: CA (occurrence: CA)
  Receive Date: 20190416
  Receipt Date: 20201118
  Transmission Date: 20210113
  Serious: Yes (Other)
  Sender: FDA-Public Use
  Company Number: CA-CELLTRION INC.-2019CA019116

PATIENT

DRUGS (14)
  1. INFLECTRA [Suspect]
     Active Substance: INFLIXIMAB-DYYB
     Dosage: 5 MG/KG, 0, 2, 6 WEEKS, THEN EVERY 8 WEEKS
     Route: 042
  2. INFLECTRA [Suspect]
     Active Substance: INFLIXIMAB-DYYB
     Dosage: 5 MG/KG, 0, 2, 6 WEEKS, THEN EVERY 8 WEEKS
     Route: 042
     Dates: start: 20190403
  3. INFLECTRA [Suspect]
     Active Substance: INFLIXIMAB-DYYB
     Dosage: 5 MG/KG, 0, 2, 6 WEEKS, THEN EVERY 8 WEEKS
     Route: 042
     Dates: start: 20190516
  4. INFLECTRA [Suspect]
     Active Substance: INFLIXIMAB-DYYB
     Dosage: 5 MG/KG, THEN EVERY 4 WEEKS
     Route: 042
     Dates: start: 20190726
  5. INFLECTRA [Suspect]
     Active Substance: INFLIXIMAB-DYYB
     Dosage: 5 MG/KG, THEN EVERY 4 WEEKS
     Route: 042
     Dates: start: 20190726
  6. HYDROCORTISONE. [Concomitant]
     Active Substance: HYDROCORTISONE
     Indication: PREMEDICATION
     Dosage: 100 MG, IV
     Route: 042
     Dates: start: 20190822, end: 20190822
  7. INFLECTRA [Suspect]
     Active Substance: INFLIXIMAB-DYYB
     Dosage: 5 MG/KG, 0, 2, 6 WEEKS, THEN EVERY 8 WEEKS
     Route: 042
     Dates: start: 20181213, end: 20181213
  8. INFLECTRA [Suspect]
     Active Substance: INFLIXIMAB-DYYB
     Dosage: 5 MG/KG, THEN EVERY 4 WEEKS
     Route: 042
     Dates: start: 20190822, end: 20190822
  9. INFLECTRA [Suspect]
     Active Substance: INFLIXIMAB-DYYB
     Dosage: 5 MG/KG, 0, 2, 6 WEEKS, THEN EVERY 8 WEEKS
     Route: 042
     Dates: start: 20190416
  10. INFLECTRA [Suspect]
     Active Substance: INFLIXIMAB-DYYB
     Indication: COLITIS ULCERATIVE
     Dosage: UNK
     Route: 065
     Dates: start: 201708, end: 2019
  11. INFLECTRA [Suspect]
     Active Substance: INFLIXIMAB-DYYB
     Dosage: 5 MG/KG THEN EVERY 6 WEEKS
     Route: 042
     Dates: start: 20190627
  12. INFLECTRA [Suspect]
     Active Substance: INFLIXIMAB-DYYB
     Dosage: UNK
     Dates: start: 201909, end: 2020
  13. INFLECTRA [Suspect]
     Active Substance: INFLIXIMAB-DYYB
     Indication: ANKYLOSING SPONDYLITIS
     Dosage: 5 MG/KG, 0, 2, 6 WEEKS, THEN EVERY 8 WEEKS
     Route: 042
     Dates: start: 20180712
  14. INFLECTRA [Suspect]
     Active Substance: INFLIXIMAB-DYYB
     Dosage: 5 MG/KG, 0, 2, 6 WEEKS, THEN EVERY 8 WEEKS
     Route: 042
     Dates: start: 20190211

REACTIONS (20)
  - Weight decreased [Unknown]
  - Arthritis [Unknown]
  - Hyperhidrosis [Unknown]
  - Musculoskeletal stiffness [Unknown]
  - Intentional product use issue [Unknown]
  - Drug ineffective [Unknown]
  - Drug specific antibody [Unknown]
  - Acne [Not Recovered/Not Resolved]
  - Fatigue [Unknown]
  - Erythema [Unknown]
  - Heart rate increased [Recovered/Resolved]
  - Skin irritation [Not Recovered/Not Resolved]
  - Anxiety [Unknown]
  - Dysgeusia [Unknown]
  - Respiratory rate increased [Unknown]
  - Condition aggravated [Not Recovered/Not Resolved]
  - Panic attack [Unknown]
  - Off label use [Unknown]
  - Inappropriate schedule of product administration [Unknown]
  - Arthralgia [Unknown]

NARRATIVE: CASE EVENT DATE: 201812
